FAERS Safety Report 8160266-1 (Version None)
Quarter: 2012Q1

REPORT INFORMATION
  Report Type: 
  Country: None (occurrence: None)
  Receive Date: 20120223
  Receipt Date: 20120223
  Transmission Date: 20120608
  Serious: Yes (Other)
  Sender: FDA-Public Use
  Company Number: None

PATIENT
  Age: 53 Year
  Sex: Female
  Weight: 81.646 kg

DRUGS (1)
  1. COMTREX COLD AND COUGH NON DROWY [Suspect]
     Route: 048
     Dates: start: 20120217, end: 20120220

REACTIONS (2)
  - HAEMATOCHEZIA [None]
  - RENAL NEOPLASM [None]
